FAERS Safety Report 17365018 (Version 1)
Quarter: 2020Q1

REPORT INFORMATION
  Report Type: Spontaneous
  Country: GB (occurrence: GB)
  Receive Date: 20200204
  Receipt Date: 20200204
  Transmission Date: 20200409
  Serious: Yes (Other)
  Sender: FDA-Public Use
  Company Number: GB-AUROBINDO-AUR-APL-2020-004476

PATIENT
  Age: 59 Year
  Sex: Male

DRUGS (1)
  1. GABAPENTIN. [Suspect]
     Active Substance: GABAPENTIN
     Indication: NEURALGIA
     Dosage: 2700 MILLIGRAM, ONCE A DAY
     Route: 048

REACTIONS (5)
  - Agitation [Unknown]
  - Disorientation [Recovered/Resolved]
  - Product dose omission [Unknown]
  - Dysarthria [Recovered/Resolved]
  - Withdrawal syndrome [Unknown]

NARRATIVE: CASE EVENT DATE: 20190408
